FAERS Safety Report 20697301 (Version 1)
Quarter: 2022Q2

REPORT INFORMATION
  Report Type: Spontaneous
  Country: US (occurrence: None)
  Receive Date: 20220408
  Receipt Date: 20220408
  Transmission Date: 20220721
  Serious: Yes (Other)
  Sender: FDA-Public Use
  Company Number: None

PATIENT
  Sex: Female

DRUGS (22)
  1. MYCOPHENOLIC ACID [Suspect]
     Active Substance: MYCOPHENOLIC ACID
     Indication: Chronic kidney disease
     Dosage: 1 TAB, BID PO??
     Route: 048
     Dates: start: 20140402
  2. CINACALCET [Suspect]
     Active Substance: CINACALCET
     Indication: Nephropathy
     Dosage: 1 TAB BID PO?
     Route: 048
     Dates: start: 20210305
  3. ACTONEL [Concomitant]
  4. ADALAT CC [Concomitant]
     Active Substance: NIFEDIPINE
  5. ALLOPURINOL [Concomitant]
  6. ATENOLOL [Concomitant]
     Active Substance: ATENOLOL
  7. CANDESARTAN [Concomitant]
     Active Substance: CANDESARTAN
  8. CELLCEPT [Concomitant]
     Active Substance: MYCOPHENOLATE MOFETIL
  9. CINACALCET HYDROCHLORIDE [Concomitant]
  10. DIOVAN [Concomitant]
  11. DOXERCALCIF [Concomitant]
  12. FERROUS SULFATE [Concomitant]
     Active Substance: FERROUS SULFATE
  13. FOLIC ACID [Concomitant]
     Active Substance: FOLIC ACID
  14. LASIX [Concomitant]
  15. LIPITOR [Concomitant]
     Active Substance: ATORVASTATIN CALCIUM
  16. MAGNESIUM OXIDE [Concomitant]
     Active Substance: MAGNESIUM OXIDE
  17. MAGNESIUM OXIDE [Concomitant]
     Active Substance: MAGNESIUM OXIDE
  18. MAGNEBIND [Concomitant]
  19. MYCOPHENOLATE MOFETIL [Concomitant]
  20. PLAQUENIL [Concomitant]
  21. PREDNISONE [Concomitant]
     Active Substance: PREDNISONE
  22. SENSIPAR [Concomitant]

REACTIONS (1)
  - Skin cancer [None]
